FAERS Safety Report 7686886-6 (Version None)
Quarter: 2011Q3

REPORT INFORMATION
  Report Type: 
  Country: None (occurrence: None)
  Receive Date: 20110816
  Receipt Date: 20110804
  Transmission Date: 20111222
  Serious: Yes (Hospitalization)
  Sender: FDA-Public Use
  Company Number: US-ELI_LILLY_AND_COMPANY-US201107003856

PATIENT
  Sex: Female
  Weight: 51.701 kg

DRUGS (3)
  1. ANTIHYPERTENSIVES [Concomitant]
  2. CALCIUM CARBONATE [Concomitant]
  3. FORTEO [Suspect]
     Indication: OSTEOPOROSIS
     Dosage: 20 UG, QD
     Route: 065
     Dates: start: 20110531, end: 20110701

REACTIONS (2)
  - HIP FRACTURE [None]
  - FALL [None]
